FAERS Safety Report 7547314-4 (Version None)
Quarter: 2011Q2

REPORT INFORMATION
  Report Type: 
  Country: None (occurrence: None)
  Receive Date: 20110614
  Receipt Date: 20110531
  Transmission Date: 20111010
  Serious: No
  Sender: FDA-Public Use
  Company Number: US-B.I. PHARMACEUTICALS,INC./RIDGEFIELD-2011-BP-10116BP

PATIENT
  Sex: Male

DRUGS (11)
  1. OXYBUTYNIN [Concomitant]
  2. TRAMADOL HCL [Concomitant]
     Indication: PAIN
  3. PRADAXA [Suspect]
     Indication: ATRIAL FIBRILLATION
     Dosage: 300 MG
     Route: 048
     Dates: start: 20110301
  4. LANOXIN [Concomitant]
  5. SIMVASTATIN [Concomitant]
     Indication: BLOOD CHOLESTEROL
  6. MSM [Concomitant]
     Indication: INFLAMMATION
     Route: 048
  7. LOVAZA [Concomitant]
     Indication: BLOOD CHOLESTEROL
  8. ZYRTEC [Concomitant]
     Indication: SEASONAL ALLERGY
     Route: 048
  9. COREG [Concomitant]
  10. VASOTEC [Concomitant]
  11. METHOCARBAMOL [Concomitant]
     Indication: MUSCLE RELAXANT THERAPY

REACTIONS (1)
  - COUGH [None]
